FAERS Safety Report 17462784 (Version 1)
Quarter: 2020Q1

REPORT INFORMATION
  Report Type: Spontaneous
  Country: US (occurrence: US)
  Receive Date: 20200213
  Receipt Date: 20200213
  Transmission Date: 20200409
  Serious: Yes (Hospitalization)
  Sender: FDA-Public Use
  Company Number: None

PATIENT
  Age: 65 Year
  Sex: Male
  Weight: 111 kg

DRUGS (2)
  1. IBUPROFEN (IBUPROFEN 800MG TAB) [Suspect]
     Active Substance: IBUPROFEN
     Indication: PAIN
     Route: 048
     Dates: start: 20191203
  2. APIXABAN (APIXABAN 5MG TAB) [Suspect]
     Active Substance: APIXABAN
     Indication: ATRIAL FIBRILLATION
     Route: 048
     Dates: start: 20191111, end: 20200107

REACTIONS (6)
  - Vomiting [None]
  - Gastric ulcer [None]
  - Gastric haemorrhage [None]
  - Nausea [None]
  - Therapy cessation [None]
  - Dizziness [None]

NARRATIVE: CASE EVENT DATE: 20191207
